FAERS Safety Report 5419101-4 (Version None)
Quarter: 2007Q3

REPORT INFORMATION
  Report Type: 
  Country: None (occurrence: None)
  Receive Date: 20070820
  Receipt Date: 20070810
  Transmission Date: 20080115
  Serious: Yes (Other)
  Sender: FDA-Public Use
  Company Number: US-ELI_LILLY_AND_COMPANY-US200708002305

PATIENT
  Age: 56 Year
  Sex: Male

DRUGS (14)
  1. ZYPREXA [Suspect]
     Indication: SCHIZOPHRENIA, PARANOID TYPE
     Dosage: 10 MG, UNK
     Dates: start: 19970101
  2. ZYPREXA [Suspect]
     Dosage: 30 MG, UNK
     Dates: start: 20070701, end: 20070701
  3. ZYPREXA [Suspect]
     Dosage: 10 MG, UNK
     Dates: start: 19970101
  4. ZYPREXA [Suspect]
     Dosage: 20 MG, UNK
     Dates: start: 20070809, end: 20070809
  5. KLONOPIN [Concomitant]
  6. DEPAKOTE [Concomitant]
  7. TRAZODONE HCL [Concomitant]
  8. FLOMAX [Concomitant]
  9. ACTIGALL [Concomitant]
  10. PEPCID AC [Concomitant]
  11. HYDROCODONE BITARTRATE [Concomitant]
  12. GABAPENTIN [Concomitant]
  13. MOTRIN [Concomitant]
  14. PEPTO-BISMOL [Concomitant]

REACTIONS (7)
  - DRUG INEFFECTIVE [None]
  - INSOMNIA [None]
  - INTENTIONAL OVERDOSE [None]
  - PHARMACEUTICAL PRODUCT COMPLAINT [None]
  - POLLAKIURIA [None]
  - PROSTATIC DISORDER [None]
  - SPINAL CORD OPERATION [None]
